FAERS Safety Report 6493506-5 (Version None)
Quarter: 2009Q4

REPORT INFORMATION
  Report Type: 
  Country: None (occurrence: None)
  Receive Date: 20091214
  Receipt Date: 20091127
  Transmission Date: 20100525
  Serious: Yes (Other)
  Sender: FDA-Public Use
  Company Number: DE-EISAI INC.-E7274-00003-SPO-DE

PATIENT
  Age: 47 Year
  Sex: Male

DRUGS (2)
  1. TRETINOIN [Suspect]
     Indication: REFRACTORY ANAEMIA
     Route: 048
  2. TRETINOIN [Suspect]
     Indication: MYELODYSPLASTIC SYNDROME
     Route: 048

REACTIONS (1)
  - ACUTE MYELOID LEUKAEMIA [None]
